FAERS Safety Report 4877617-3 (Version None)
Quarter: 2006Q1

REPORT INFORMATION
  Report Type: 
  Country: None (occurrence: None)
  Receive Date: 20060111
  Receipt Date: 20051227
  Transmission Date: 20060701
  Serious: Yes (Other)
  Sender: FDA-Public Use
  Company Number: GRWYE267729DEC05

PATIENT
  Age: 79 Year
  Sex: Male

DRUGS (3)
  1. ENBREL [Suspect]
     Indication: RHEUMATOID ARTHRITIS
     Route: 058
     Dates: start: 20030101, end: 20051001
  2. PREZOLON [Concomitant]
     Route: 048
     Dates: start: 20030101
  3. METHOTREXATE [Concomitant]
     Route: 048
     Dates: start: 20030101

REACTIONS (2)
  - LUNG NEOPLASM MALIGNANT [None]
  - PLEURAL EFFUSION [None]
